FAERS Safety Report 7298709-8 (Version None)
Quarter: 2011Q1

REPORT INFORMATION
  Report Type: 
  Country: None (occurrence: None)
  Receive Date: 20110217
  Receipt Date: 20110214
  Transmission Date: 20110831
  Serious: Yes (Life-Threatening, Hospitalization)
  Sender: FDA-Public Use
  Company Number: ES-PFIZER INC-2011031852

PATIENT
  Age: 27 Year
  Sex: Female

DRUGS (2)
  1. PREPIDIL [Suspect]
     Indication: LABOUR INDUCTION
     Dosage: UNK
     Route: 019
     Dates: start: 20101122, end: 20101122
  2. PREPIDIL [Suspect]
     Indication: INTRA-UTERINE DEATH

REACTIONS (3)
  - VOMITING [None]
  - DISSEMINATED INTRAVASCULAR COAGULATION [None]
  - MALAISE [None]
